FAERS Safety Report 17236325 (Version 1)
Quarter: 2020Q1

REPORT INFORMATION
  Report Type: Spontaneous
  Country: AU (occurrence: AU)
  Receive Date: 20200106
  Receipt Date: 20200106
  Transmission Date: 20200409
  Serious: Yes (Life-Threatening, Hospitalization)
  Sender: FDA-Public Use
  Company Number: AU-TEVA-2019-AU-1162856

PATIENT
  Age: 38 Year
  Sex: Male

DRUGS (3)
  1. ROCURONIUM [Concomitant]
     Active Substance: ROCURONIUM BROMIDE
     Indication: INDUCTION OF ANAESTHESIA
     Route: 065
  2. FENTANYL. [Suspect]
     Active Substance: FENTANYL
     Indication: INDUCTION OF ANAESTHESIA
     Route: 065
  3. KETAMINE [Concomitant]
     Active Substance: KETAMINE
     Indication: INDUCTION OF ANAESTHESIA
     Route: 065

REACTIONS (5)
  - Abdominal distension [Recovered/Resolved]
  - Parasympathetic nerve injury [Recovered/Resolved]
  - Vagus nerve disorder [Recovered/Resolved]
  - Pulseless electrical activity [Recovered/Resolved]
  - Autonomic nervous system imbalance [Recovered/Resolved]
